FAERS Safety Report 13662503 (Version 2)
Quarter: 2017Q2

REPORT INFORMATION
  Report Type: Spontaneous
  Country: US (occurrence: US)
  Receive Date: 20170617
  Receipt Date: 20170626
  Transmission Date: 20170830
  Serious: Yes (Death, Hospitalization, Other)
  Sender: FDA-Public Use
  Company Number: US-AMGEN-USASL2017088504

PATIENT
  Age: 68 Year
  Sex: Male

DRUGS (4)
  1. ENBREL [Suspect]
     Active Substance: ETANERCEPT
     Indication: RHEUMATOID ARTHRITIS
     Dosage: 50 MG, QWK
     Route: 065
     Dates: start: 199806, end: 201704
  2. MARIJUANA [Concomitant]
     Active Substance: CANNABIS SATIVA SUBSP. INDICA TOP
     Dosage: UNK
  3. PEDIALYTE [Concomitant]
     Active Substance: POTASSIUM CITRATE\SODIUM CITRATE\ZINC
     Dosage: UNK
  4. PURE BAKING SODA [Concomitant]
     Active Substance: SODIUM BICARBONATE
     Dosage: UNK

REACTIONS (15)
  - Dehydration [Unknown]
  - Eating disorder [Unknown]
  - Anuria [Unknown]
  - Hepatic cancer [Fatal]
  - Metastases to stomach [Unknown]
  - Abasia [Not Recovered/Not Resolved]
  - Hallucination [Unknown]
  - Dyspnoea [Unknown]
  - Drug ineffective [Unknown]
  - Weight increased [Recovering/Resolving]
  - Device dislocation [Unknown]
  - Malaise [Unknown]
  - Pruritus generalised [Unknown]
  - Gallbladder cancer [Fatal]
  - Jaundice [Unknown]

NARRATIVE: CASE EVENT DATE: 2016
